FAERS Safety Report 12680485 (Version 1)
Quarter: 2016Q3

REPORT INFORMATION
  Report Type: Report from Study
  Country: BR (occurrence: BR)
  Receive Date: 20160824
  Receipt Date: 20160824
  Transmission Date: 20161109
  Serious: Yes (Hospitalization)
  Sender: FDA-Public Use
  Company Number: PHHY2016BR115723

PATIENT
  Age: 83 Year
  Sex: Female
  Weight: 67 kg

DRUGS (4)
  1. EXELON PATCH [Suspect]
     Active Substance: RIVASTIGMINE
     Indication: COGNITIVE DISORDER
     Dosage: PATCH 15 (CM2), QD
     Route: 062
     Dates: start: 20160811
  2. PROLOPA [Suspect]
     Active Substance: BENSERAZIDE\LEVODOPA
     Indication: PRODUCT USED FOR UNKNOWN INDICATION
     Route: 065
  3. EXELON PATCH [Suspect]
     Active Substance: RIVASTIGMINE
     Indication: COGNITIVE DISORDER
     Dosage: PATCH 5 (CM2), UNK
     Route: 062
  4. EXELON PATCH [Suspect]
     Active Substance: RIVASTIGMINE
     Indication: DEMENTIA
     Dosage: PATCH 10 (CM2), UNK
     Route: 062

REACTIONS (8)
  - Memory impairment [Not Recovered/Not Resolved]
  - Spinal fracture [Recovered/Resolved with Sequelae]
  - Illusion [Unknown]
  - Confusional state [Unknown]
  - Hallucination [Unknown]
  - Femur fracture [Unknown]
  - Fall [Unknown]
  - Nervousness [Unknown]

NARRATIVE: CASE EVENT DATE: 20160101
